FAERS Safety Report 5005753-X (Version None)
Quarter: 2006Q2

REPORT INFORMATION
  Report Type: 
  Country: None (occurrence: None)
  Receive Date: 20060518
  Receipt Date: 20060509
  Transmission Date: 20061013
  Serious: Yes (Death, Hospitalization)
  Sender: FDA-Public Use
  Company Number: JP-BRISTOL-MYERS SQUIBB COMPANY-13378864

PATIENT
  Age: 70 Year
  Sex: Male

DRUGS (2)
  1. ENDOXAN [Suspect]
     Indication: WEGENER'S GRANULOMATOSIS
     Route: 042
     Dates: start: 20040801
  2. PREDONINE [Suspect]
     Indication: WEGENER'S GRANULOMATOSIS
     Dates: start: 20040801

REACTIONS (2)
  - COCCIDIOIDOMYCOSIS [None]
  - RESPIRATORY FAILURE [None]
